FAERS Safety Report 4296269-7 (Version None)
Quarter: 2004Q1

REPORT INFORMATION
  Report Type: 
  Country: None (occurrence: None)
  Receive Date: 20040217
  Receipt Date: 20031002
  Transmission Date: 20041129
  Serious: No
  Sender: FDA-Public Use
  Company Number: US-GLAXOSMITHKLINE-A0428405A

PATIENT
  Age: 43 Year
  Sex: Female

DRUGS (7)
  1. LAMICTAL [Suspect]
     Indication: BIPOLAR DISORDER
     Dosage: 37.5MG TWICE PER DAY
     Route: 048
     Dates: start: 20030921
  2. TEGRETOL [Concomitant]
  3. SEROQUEL [Concomitant]
  4. WELLBUTRIN SR [Concomitant]
  5. EFFEXOR [Concomitant]
  6. INDERAL [Concomitant]
  7. BENADRYL [Concomitant]

REACTIONS (1)
  - PRURITUS [None]
